FAERS Safety Report 7432188-2 (Version None)
Quarter: 2011Q2

REPORT INFORMATION
  Report Type: 
  Country: None (occurrence: None)
  Receive Date: 20110415
  Receipt Date: 20110412
  Transmission Date: 20111010
  Serious: Yes (Other)
  Sender: FDA-Public Use
  Company Number: USA/USA/11/0018000

PATIENT
  Sex: Female

DRUGS (7)
  1. COQ-10 (UBIDECARENONE) [Concomitant]
  2. ASPIRIN [Concomitant]
  3. RED RICE YEAST (YEAST) [Concomitant]
  4. FISH OIL (FISH OIL) [Concomitant]
  5. RANITIDINE [Suspect]
     Indication: GASTROOESOPHAGEAL REFLUX DISEASE
     Dosage: 1 DOSAGE FORMS, 1 TAB BEFORE MEALS (2TO3 TIMES DAILY, ORAL
     Route: 048
  6. NIACIN [Concomitant]
  7. ZINC (ZINC) [Concomitant]

REACTIONS (9)
  - FACE INJURY [None]
  - BLOOD PRESSURE SYSTOLIC INCREASED [None]
  - LACERATION [None]
  - FALL [None]
  - PAIN IN EXTREMITY [None]
  - MUSCULOSKELETAL PAIN [None]
  - DIZZINESS [None]
  - DIZZINESS POSTURAL [None]
  - MUSCULAR WEAKNESS [None]
